FAERS Safety Report 8719607 (Version 2)
Quarter: 2012Q4

REPORT INFORMATION
  Report Type: 
  Country: JP (occurrence: JP)
  Receive Date: 20120813
  Receipt Date: 20120831
  Transmission Date: 20130627
  Serious: Yes (Life-Threatening)
  Sender: FDA-Public Use
  Company Number: JP-SANOFI-AVENTIS-2012SA057213

PATIENT
  Age: 25 Year
  Sex: Male
  Weight: 127 kg

DRUGS (3)
  1. LASIX [Suspect]
     Indication: OEDEMA
     Route: 048
     Dates: start: 20120302
  2. ALDACTONE [Suspect]
     Indication: DRUG USE FOR UNKNOWN INDICATION
     Route: 048
  3. DIGOXIN [Suspect]
     Indication: DRUG USE FOR UNKNOWN INDICATION
     Route: 065

REACTIONS (1)
  - Renal failure acute [Recovering/Resolving]
